FAERS Safety Report 8796096 (Version 3)
Quarter: 2012Q4

REPORT INFORMATION
  Report Type: 
  Country: DK (occurrence: FR)
  Receive Date: 20120919
  Receipt Date: 20121220
  Transmission Date: 20130627
  Serious: Yes (Hospitalization)
  Sender: FDA-Public Use
  Company Number: FR-FRI-1000038609

PATIENT
  Age: 21 Year
  Sex: Female

DRUGS (4)
  1. ESCITALOPRAM [Suspect]
     Indication: DEPRESSION
     Route: 048
     Dates: start: 201205, end: 20120721
  2. XANAX [Suspect]
     Route: 048
     Dates: start: 201205, end: 20120721
  3. YAZ [Suspect]
     Indication: ORAL CONTRACEPTION
     Dosage: 0.02 mg/3 mg
     Route: 048
     Dates: start: 201205, end: 20120721
  4. YAZ [Suspect]
     Dosage: 0.02 mg/3 mg
     Route: 048

REACTIONS (1)
  - Bone marrow failure [Not Recovered/Not Resolved]
